FAERS Safety Report 16388079 (Version 1)
Quarter: 2019Q2

REPORT INFORMATION
  Report Type: Spontaneous
  Country: FR (occurrence: FR)
  Receive Date: 20190604
  Receipt Date: 20190604
  Transmission Date: 20190711
  Serious: Yes (Life-Threatening)
  Sender: FDA-Public Use
  Company Number: FR-MYLANLABS-2019M1052816

PATIENT
  Age: 56 Year
  Sex: Female
  Weight: 99 kg

DRUGS (8)
  1. MYLAN CEFAZOLIN 1 G [Suspect]
     Active Substance: CEFAZOLIN SODIUM
     Indication: INFECTION PROPHYLAXIS
     Dosage: 4 GRAM, TOTAL
     Route: 041
     Dates: start: 20181116, end: 20181116
  2. PROPOFOL. [Suspect]
     Active Substance: PROPOFOL
     Indication: GENERAL ANAESTHESIA
     Dosage: 250 MILLIGRAM
     Route: 041
     Dates: start: 20181116, end: 20181116
  3. THERALENE [Concomitant]
     Active Substance: TRIMEPRAZINE
  4. SERESTA [Concomitant]
     Active Substance: OXAZEPAM
  5. CISATRACURIUM MYLAN [Suspect]
     Active Substance: CISATRACURIUM
     Indication: NEUROMUSCULAR BLOCKING THERAPY
     Dosage: 10 MILLIGRAM, TOTAL
     Route: 041
     Dates: start: 20181116, end: 20181116
  6. KETAMINE RENAUDIN [Suspect]
     Active Substance: KETAMINE
     Indication: GENERAL ANAESTHESIA
     Dosage: 30 MILLIGRAM, TOTAL
     Route: 041
     Dates: start: 20181116, end: 20181116
  7. SURGESTONE [Concomitant]
     Active Substance: PROMEGESTONE
  8. DEXAMETHASONE MYLAN [Suspect]
     Active Substance: DEXAMETHASONE
     Indication: ALLERGY PROPHYLAXIS
     Dosage: 8 MILLIGRAM, TOTAL
     Route: 041
     Dates: start: 20181116, end: 20181116

REACTIONS (1)
  - Hypotension [Recovered/Resolved]

NARRATIVE: CASE EVENT DATE: 20181116
